FAERS Safety Report 20789135 (Version 1)
Quarter: 2022Q2

REPORT INFORMATION
  Report Type: Spontaneous
  Country: US (occurrence: None)
  Receive Date: 20220504
  Receipt Date: 20220504
  Transmission Date: 20220721
  Serious: Yes (Death)
  Sender: FDA-Public Use
  Company Number: None

PATIENT
  Sex: Female

DRUGS (7)
  1. CAPECITABINE [Suspect]
     Active Substance: CAPECITABINE
     Indication: Ovarian cancer
     Route: 048
     Dates: start: 20210120
  2. D-2000 MAXIMUM STRENGTH [Concomitant]
  3. FISH OIL [Concomitant]
  4. LISINOPRIL [Concomitant]
  5. VITAMIN C LIQ [Concomitant]
  6. VITAMIN D3 [Concomitant]
     Active Substance: CHOLECALCIFEROL
  7. VITAMIN D3 SUPER STRENGTH [Concomitant]

REACTIONS (1)
  - Death [None]
